FAERS Safety Report 14168932 (Version 3)
Quarter: 2017Q4

REPORT INFORMATION
  Report Type: Spontaneous
  Country: US (occurrence: US)
  Receive Date: 20171108
  Receipt Date: 20171222
  Transmission Date: 20180321
  Serious: No
  Sender: FDA-Public Use
  Company Number: US-PFIZER INC-2017475847

PATIENT
  Age: 60 Year
  Sex: Female
  Weight: 72 kg

DRUGS (2)
  1. SUTENT [Suspect]
     Active Substance: SUNITINIB MALATE
     Indication: FIBROMA
     Dosage: 37.5 MG, DAILY
     Dates: start: 2017
  2. TUMS [Concomitant]
     Active Substance: CALCIUM CARBONATE
     Dosage: UNK, AS NEEDED

REACTIONS (24)
  - Dysgeusia [Recovering/Resolving]
  - Vulvovaginal discomfort [Unknown]
  - Vulvovaginal inflammation [Unknown]
  - Pharyngeal disorder [Unknown]
  - Hypersensitivity [Recovering/Resolving]
  - Upper-airway cough syndrome [Recovered/Resolved]
  - Skin discolouration [Unknown]
  - Dry skin [Unknown]
  - Hypothyroidism [Unknown]
  - Product use in unapproved indication [Unknown]
  - Vulvovaginal dryness [Unknown]
  - Skin haemorrhage [Unknown]
  - Hypertension [Recovered/Resolved]
  - Liver function test abnormal [Unknown]
  - Breast discolouration [Unknown]
  - Cardiovascular disorder [Unknown]
  - Oral pain [Unknown]
  - Tongue erythema [Recovering/Resolving]
  - Condition aggravated [Recovering/Resolving]
  - Anorectal discomfort [Unknown]
  - Migraine with aura [Unknown]
  - Gastrooesophageal reflux disease [Not Recovered/Not Resolved]
  - Anal inflammation [Unknown]
  - Visual field defect [Recovered/Resolved]

NARRATIVE: CASE EVENT DATE: 2017
